FAERS Safety Report 25907146 (Version 1)
Quarter: 2025Q4

REPORT INFORMATION
  Report Type: Report from Study
  Country: US (occurrence: US)
  Receive Date: 20251010
  Receipt Date: 20251010
  Transmission Date: 20260118
  Serious: Yes (Hospitalization)
  Sender: ABBVIE
  Company Number: US-ABBVIE-6494627

PATIENT
  Sex: Female

DRUGS (1)
  1. HUMIRA [Suspect]
     Active Substance: ADALIMUMAB
     Indication: Product used for unknown indication
     Route: 058

REACTIONS (10)
  - Stenosis [Unknown]
  - Therapeutic product effect decreased [Unknown]
  - Memory impairment [Unknown]
  - Brain fog [Unknown]
  - Disturbance in attention [Unknown]
  - Depression [Recovering/Resolving]
  - Anaemia [Unknown]
  - Crohn^s disease [Unknown]
  - Malabsorption [Unknown]
  - Thrombosis [Unknown]
